FAERS Safety Report 8971176 (Version 2)
Quarter: 2013Q1

REPORT INFORMATION
  Report Type: Spontaneous
  Country: FR (occurrence: FR)
  Receive Date: 20121218
  Receipt Date: 20130131
  Transmission Date: 20140127
  Serious: No
  Sender: FDA-Public Use
  Company Number: FR-PFIZER INC-2012316938

PATIENT
  Age: 72 Year
  Sex: Male

DRUGS (10)
  1. INIPOMP [Suspect]
     Dosage: 20 MG, UNK
     Route: 048
     Dates: start: 20120914, end: 20120914
  2. STALEVO [Suspect]
     Dosage: 100/25/200 MG, UNK
     Route: 048
     Dates: start: 20120914
  3. XATRAL [Suspect]
     Dosage: 10 MG, UNK
     Route: 048
  4. AVODART [Suspect]
     Dosage: 0.5 UNK, UNK
     Route: 048
  5. TAHOR [Concomitant]
     Dosage: UNK
  6. INSULIN [Concomitant]
     Dosage: UNK
  7. DAFALGAN [Concomitant]
     Dosage: UNK
  8. KARDEGIC [Concomitant]
     Dosage: UNK
  9. PLAVIX [Concomitant]
     Dosage: UNK
  10. PRIMPERAN [Concomitant]
     Dosage: UNK

REACTIONS (3)
  - Accidental overdose [Recovered/Resolved]
  - Hypotension [Recovered/Resolved]
  - Drug administration error [Recovered/Resolved]
